FAERS Safety Report 14677860 (Version 2)
Quarter: 2018Q2

REPORT INFORMATION
  Report Type: Spontaneous
  Country: JP (occurrence: JP)
  Receive Date: 20180326
  Receipt Date: 20180409
  Transmission Date: 20180711
  Serious: Yes (Other)
  Sender: FDA-Public Use
  Company Number: JP-BEH-2018089018

PATIENT
  Age: 88 Year
  Sex: Male

DRUGS (3)
  1. HUMAN IMMUNOGLOBULIN (NC) [Suspect]
     Active Substance: HUMAN IMMUNOGLOBULIN G
     Indication: PEMPHIGOID
     Dosage: 400 MG/KG, OD
     Route: 042
  2. CORTICOSTEROID NOS [Concomitant]
     Active Substance: CORTICOSTEROID NOS
     Indication: PEMPHIGOID
     Dosage: 0.5 MG/KG, OD
     Route: 048
  3. DEXAMETHASONE ISONICOTINATE [Concomitant]
     Indication: PEMPHIGOID
     Route: 061

REACTIONS (2)
  - Leukopenia [Recovered/Resolved]
  - Thrombocytopenia [Recovered/Resolved]
